FAERS Safety Report 11644609 (Version 2)
Quarter: 2015Q4

REPORT INFORMATION
  Report Type: Spontaneous
  Country: US (occurrence: US)
  Receive Date: 20151020
  Receipt Date: 20151102
  Transmission Date: 20160304
  Serious: Yes (Other)
  Sender: FDA-Public Use
  Company Number: US-LPDUSPRD-20150812

PATIENT
  Age: 22 Year
  Sex: Female

DRUGS (3)
  1. BETAMETHASONE SODIUM PHOS/BETAMETHASONE ACETATE INJ SUSP, USP (40042-0 [Concomitant]
     Active Substance: BETAMETHASONE ACETATE\BETAMETHASONE SODIUM PHOSPHATE
     Dosage: 12 MG/DOSE/2 DOSES
     Route: 065
  2. MAGNESIUM SULFATE INJECTION, USP (2602-25) [Suspect]
     Active Substance: MAGNESIUM SULFATE
     Dosage: 4 GM
     Route: 042
  3. INDOMETHACIN. [Concomitant]
     Active Substance: INDOMETHACIN
     Dosage: 25 MG EVERY 6 HOURS
     Route: 065

REACTIONS (1)
  - Pulmonary oedema [Unknown]
